FAERS Safety Report 17706092 (Version 1)
Quarter: 2020Q2

REPORT INFORMATION
  Report Type: Spontaneous
  Country: FR (occurrence: FR)
  Receive Date: 20200424
  Receipt Date: 20200424
  Transmission Date: 20200714
  Serious: Yes (Death)
  Sender: FDA-Public Use
  Company Number: NVSC2020FR109733

PATIENT
  Age: 75 Year
  Sex: Male
  Weight: 70 kg

DRUGS (8)
  1. XENETIC 350 [Suspect]
     Active Substance: IOBITRIDOL
     Indication: COMPUTERISED TOMOGRAM
     Dosage: 115 ML, ONCE/SINGLE
     Route: 042
     Dates: start: 20191227, end: 20191227
  2. FUROSEMIDE. [Concomitant]
     Active Substance: FUROSEMIDE
     Indication: HYPERTENSION
     Dosage: 160 MG, QD
     Route: 048
     Dates: end: 20191231
  3. ENTRESTO [Concomitant]
     Active Substance: SACUBITRIL\VALSARTAN
     Indication: HYPERTENSION
     Dosage: 2 DF, QD (24 MG/26 MG)
     Route: 048
     Dates: end: 20191230
  4. ELIQUIS [Concomitant]
     Active Substance: APIXABAN
     Indication: CARDIAC VALVE PROSTHESIS USER
     Dosage: 2 DF, QD
     Route: 048
     Dates: end: 20191231
  5. GENETAMICIN (GENTAMICIN SULFATE) [Suspect]
     Active Substance: GENTAMICIN SULFATE
     Indication: ENDOCARDITIS
     Dosage: 210 MG, Q24H
     Route: 042
     Dates: start: 201912, end: 20191230
  6. VANCOMYCIN HYDROCHLORIDE. [Suspect]
     Active Substance: VANCOMYCIN HYDROCHLORIDE
     Indication: ENDOCARDITIS
     Dosage: UNK (INCONNUE)
     Route: 042
     Dates: start: 20191221, end: 20191230
  7. BISOPROL [Concomitant]
     Active Substance: BISOPROLOL FUMARATE
     Indication: HYPERTENSION
     Dosage: 5 MG, QD
     Route: 048
     Dates: end: 20200101
  8. SPIRONOLACTONE. [Concomitant]
     Active Substance: SPIRONOLACTONE
     Indication: HYPERTENSION
     Dosage: 25 MG, QD
     Route: 048
     Dates: end: 20191230

REACTIONS (1)
  - Acute kidney injury [Fatal]

NARRATIVE: CASE EVENT DATE: 20191226
